FAERS Safety Report 23682835 (Version 5)
Quarter: 2024Q2

REPORT INFORMATION
  Report Type: Spontaneous
  Country: JP (occurrence: JP)
  Receive Date: 20240328
  Receipt Date: 20240520
  Transmission Date: 20240716
  Serious: Yes (Other)
  Sender: FDA-Public Use
  Company Number: JP-KYOWAKIRIN-2024KK005529

PATIENT
  Sex: Male

DRUGS (14)
  1. ROMIPLOSTIM [Suspect]
     Active Substance: ROMIPLOSTIM
     Indication: Aplastic anaemia
     Dosage: 10 MG/M2, 1X/WEEK
     Route: 058
     Dates: start: 20210506, end: 20210527
  2. ROMIPLOSTIM [Suspect]
     Active Substance: ROMIPLOSTIM
     Dosage: 15 MG/M2, 1X/WEEK
     Route: 058
     Dates: start: 20210603, end: 20210909
  3. ROMIPLOSTIM [Suspect]
     Active Substance: ROMIPLOSTIM
     Dosage: 10 MG/M2, 1X/2 WEEKS
     Route: 058
     Dates: start: 20210916, end: 20210930
  4. ROMIPLOSTIM [Suspect]
     Active Substance: ROMIPLOSTIM
     Dosage: 10 MG/M2, 1X/WEEK
     Route: 058
     Dates: start: 20211007, end: 20211223
  5. ROMIPLOSTIM [Suspect]
     Active Substance: ROMIPLOSTIM
     Dosage: 10 MG/M2, 1X/WEEK
     Route: 058
     Dates: start: 20220106, end: 20220428
  6. ROMIPLOSTIM [Suspect]
     Active Substance: ROMIPLOSTIM
     Dosage: 10 MG/M2, 1X/WEEK
     Route: 058
     Dates: start: 20220512, end: 20220630
  7. ROMIPLOSTIM [Suspect]
     Active Substance: ROMIPLOSTIM
     Dosage: 15 MG/M2, 1X/WEEK
     Route: 058
     Dates: start: 20220707, end: 20220804
  8. ROMIPLOSTIM [Suspect]
     Active Substance: ROMIPLOSTIM
     Dosage: 15 MG/M2, 1X/WEEK
     Route: 058
     Dates: start: 20220818, end: 20221027
  9. ROMIPLOSTIM [Suspect]
     Active Substance: ROMIPLOSTIM
     Dosage: 15 MILLIGRAM/SQ. METER, QWK15 MG/M2, 1X/WEEK
     Route: 058
     Dates: start: 20221110, end: 20230428
  10. ROMIPLOSTIM [Suspect]
     Active Substance: ROMIPLOSTIM
     Dosage: 15 MG/M2
     Route: 058
     Dates: start: 20230501, end: 20230501
  11. LANSOPRAZOLE [Concomitant]
     Active Substance: LANSOPRAZOLE
     Indication: Product used for unknown indication
     Dosage: UNK
     Route: 048
  12. REBAMIPIDE [Concomitant]
     Active Substance: REBAMIPIDE
     Indication: Product used for unknown indication
     Dosage: UNK
     Route: 048
  13. MIRABEGRON [Concomitant]
     Active Substance: MIRABEGRON
     Indication: Product used for unknown indication
     Dosage: UNK
     Route: 048
  14. SILODOSIN [Concomitant]
     Active Substance: SILODOSIN
     Indication: Benign prostatic hyperplasia
     Dosage: UNK
     Route: 048

REACTIONS (1)
  - Cholecystitis [Unknown]
